FAERS Safety Report 8949753 (Version 3)
Quarter: 2013Q2

REPORT INFORMATION
  Report Type: Report from Study
  Country: PL (occurrence: PL)
  Receive Date: 20121206
  Receipt Date: 20130508
  Transmission Date: 20140414
  Serious: No
  Sender: FDA-Public Use
  Company Number: PL-ASTELLAS-2012EU010472

PATIENT
  Age: 37 Year
  Sex: Female
  Weight: 85 kg

DRUGS (2)
  1. BLINDED SOLIFENACIN-MIRABEGRON [Suspect]
     Indication: HYPERTONIC BLADDER
     Dosage: UNK
     Route: 048
  2. JEANINE                            /02877601/ [Concomitant]
     Indication: CONTRACEPTION
     Dosage: 1 DF, UNKNOWN/D
     Route: 048
     Dates: start: 2008

REACTIONS (1)
  - Overdose [Recovered/Resolved]
